FAERS Safety Report 14369970 (Version 11)
Quarter: 2025Q2

REPORT INFORMATION
  Report Type: Report from Study
  Country: CA (occurrence: CA)
  Receive Date: 20180110
  Receipt Date: 20250514
  Transmission Date: 20250717
  Serious: Yes (Hospitalization, Other)
  Sender: TAKEDA
  Company Number: CA-TAKEDA-2018TUS000100

PATIENT
  Age: 14 Year
  Sex: Female

DRUGS (10)
  1. VEDOLIZUMAB [Suspect]
     Active Substance: VEDOLIZUMAB
     Indication: Colitis ulcerative
  2. VEDOLIZUMAB [Suspect]
     Active Substance: VEDOLIZUMAB
  3. VEDOLIZUMAB [Suspect]
     Active Substance: VEDOLIZUMAB
  4. VEDOLIZUMAB [Suspect]
     Active Substance: VEDOLIZUMAB
  5. VEDOLIZUMAB [Suspect]
     Active Substance: VEDOLIZUMAB
  6. VEDOLIZUMAB [Suspect]
     Active Substance: VEDOLIZUMAB
  7. VEDOLIZUMAB [Suspect]
     Active Substance: VEDOLIZUMAB
     Dosage: 300 MILLIGRAM, Q4WEEKS
     Dates: start: 20220926
  8. VEDOLIZUMAB [Suspect]
     Active Substance: VEDOLIZUMAB
     Dosage: 300 MILLIGRAM, Q4WEEKS
  9. VEDOLIZUMAB [Suspect]
     Active Substance: VEDOLIZUMAB
     Dosage: 300 MILLIGRAM, Q4WEEKS
  10. Salofalk [Concomitant]

REACTIONS (12)
  - Splenomegaly [Not Recovered/Not Resolved]
  - Hepatomegaly [Not Recovered/Not Resolved]
  - Colitis ulcerative [Unknown]
  - Abdominal pain upper [Not Recovered/Not Resolved]
  - Alopecia [Unknown]
  - Therapeutic reaction time decreased [Unknown]
  - Product dose omission issue [Unknown]
  - Off label use [Unknown]
  - Product dose omission issue [Unknown]
  - Malaise [Unknown]
  - Abdominal distension [Unknown]
  - Fatigue [Unknown]

NARRATIVE: CASE EVENT DATE: 20171010
